FAERS Safety Report 5478069-5 (Version None)
Quarter: 2007Q4

REPORT INFORMATION
  Report Type: 
  Country: None (occurrence: None)
  Receive Date: 20071005
  Receipt Date: 20070926
  Transmission Date: 20080405
  Serious: Yes (Other)
  Sender: FDA-Public Use
  Company Number: DE-JNJFOC-20070905885

PATIENT
  Age: 6 Year
  Sex: Female

DRUGS (1)
  1. REMICADE [Suspect]
     Indication: UVEITIS
     Route: 042

REACTIONS (3)
  - INFECTION [None]
  - NON-HODGKIN'S LYMPHOMA [None]
  - TONSILLAR HYPERTROPHY [None]
